FAERS Safety Report 8830685 (Version 1)
Quarter: 2012Q4

REPORT INFORMATION
  Report Type: 
  Country: RU (occurrence: RU)
  Receive Date: 20121009
  Receipt Date: 20121009
  Transmission Date: 20130627
  Serious: Yes (Other)
  Sender: FDA-Public Use
  Company Number: PHHY2012RU088791

PATIENT
  Age: 51 Year
  Sex: Female

DRUGS (2)
  1. AFINITOR [Suspect]
     Dosage: 10 mg, daily
     Dates: start: 20120829
  2. AROMASIN [Concomitant]
     Dosage: 25 mg, daily

REACTIONS (2)
  - Cardiotoxicity [Not Recovered/Not Resolved]
  - Hyperglycaemia [Not Recovered/Not Resolved]
